FAERS Safety Report 9062400 (Version 2)
Quarter: 2013Q3

REPORT INFORMATION
  Report Type: Report from Study
  Country: AU (occurrence: AU)
  Receive Date: 20130213
  Receipt Date: 20130906
  Transmission Date: 20140515
  Serious: Yes (Life-Threatening, Hospitalization, Disabling)
  Sender: FDA-Public Use
  Company Number: AU-GLAXOSMITHKLINE-B0866895A

PATIENT
  Age: 86 Year
  Sex: Female

DRUGS (3)
  1. ELTROMBOPAG [Suspect]
     Indication: THROMBOCYTOPENIA
     Dosage: 50MG PER DAY
     Dates: start: 20121227
  2. AZACITIDINE [Suspect]
     Indication: MYELODYSPLASTIC SYNDROME
     Dosage: 120MG PER DAY
     Dates: start: 20121228
  3. CARTIA [Concomitant]
     Dosage: 100MG PER DAY
     Dates: end: 20130206

REACTIONS (1)
  - Myocardial infarction [Recovered/Resolved]
